FAERS Safety Report 26076409 (Version 1)
Quarter: 2025Q4

REPORT INFORMATION
  Report Type: Spontaneous
  Country: US (occurrence: US)
  Receive Date: 20251121
  Receipt Date: 20251121
  Transmission Date: 20260118
  Serious: Yes (Other)
  Sender: Kenvue
  Company Number: US-KENVUE-20251105622

PATIENT

DRUGS (1)
  1. TYLENOL [Suspect]
     Active Substance: ACETAMINOPHEN
     Indication: Product used for unknown indication
     Dosage: TOOK TOO MANY
     Route: 065

REACTIONS (4)
  - Blindness [Unknown]
  - Hallucination, auditory [Unknown]
  - Product use issue [Unknown]
  - Sensory loss [Unknown]
